FAERS Safety Report 5325014-9 (Version None)
Quarter: 2007Q2

REPORT INFORMATION
  Report Type: 
  Country: None (occurrence: None)
  Receive Date: 20070511
  Receipt Date: 20070511
  Transmission Date: 20071010
  Serious: Yes (Hospitalization)
  Sender: FDA-Public Use
  Company Number: None

PATIENT
  Sex: Male
  Weight: 70 kg

DRUGS (5)
  1. CYCLOPHOSPHAMIDE [Suspect]
     Dosage: 2280 MG
     Dates: end: 20070424
  2. DAUNORUBICIN HCL [Suspect]
     Dosage: 456 MG
     Dates: end: 20070426
  3. DEXAMETHASONE 0.5MG TAB [Suspect]
     Dosage: 140 MG
     Dates: end: 20070508
  4. L-ASPARAGINASE [Suspect]
     Dosage: 45600 UNIT
     Dates: end: 20070505
  5. VINCRISTINE SULFATE [Suspect]
     Dosage: 6 MG
     Dates: end: 20070508

REACTIONS (2)
  - ILIAC ARTERY OCCLUSION [None]
  - PELVIC VENOUS THROMBOSIS [None]
